FAERS Safety Report 5085913-2 (Version None)
Quarter: 2006Q3

REPORT INFORMATION
  Report Type: 
  Country: None (occurrence: None)
  Receive Date: 20060817
  Receipt Date: 20060804
  Transmission Date: 20061208
  Serious: Yes (Hospitalization)
  Sender: FDA-Public Use
  Company Number: 2006096728

PATIENT
  Age: 67 Year
  Sex: Female
  Weight: 62.5 kg

DRUGS (3)
  1. SUTENT [Suspect]
     Indication: METASTATIC RENAL CELL CARCINOMA
     Dosage: 50 MG (50 MG, 1 IN 1 D), ORAL
     Route: 048
     Dates: start: 20060712, end: 20060731
  2. CALCIUM WITH VITAMIN D (CALCIUM PHOSPHATE, CALCIUM SODIUM LACTATE, ERG [Concomitant]
  3. ASPIRIN [Concomitant]

REACTIONS (5)
  - LYMPHADENOPATHY [None]
  - NIGHT SWEATS [None]
  - PAIN IN JAW [None]
  - PERICORONITIS [None]
  - SYNCOPE [None]
